FAERS Safety Report 6241375-0 (Version None)
Quarter: 2009Q2

REPORT INFORMATION
  Report Type: 
  Country: None (occurrence: None)
  Receive Date: 20090623
  Receipt Date: 20090608
  Transmission Date: 20091009
  Serious: Yes (Death, Other)
  Sender: FDA-Public Use
  Company Number: CA-GENENTECH-285380

PATIENT

DRUGS (1)
  1. RITUXAN [Suspect]
     Indication: B-CELL LYMPHOMA
     Dosage: 375 MG/M2, UNK
     Route: 042

REACTIONS (16)
  - ACUTE MYELOID LEUKAEMIA [None]
  - ATYPICAL MYCOBACTERIAL INFECTION [None]
  - BACTERAEMIA [None]
  - FEBRILE NEUTROPENIA [None]
  - HERPES ZOSTER [None]
  - HYPOGAMMAGLOBULINAEMIA [None]
  - INTERSTITIAL LUNG DISEASE [None]
  - LUNG NEOPLASM MALIGNANT [None]
  - NEUTROPENIA [None]
  - OPTIC NEURITIS [None]
  - PNEUMONIA BACTERIAL [None]
  - PNEUMONIA FUNGAL [None]
  - RENAL FAILURE ACUTE [None]
  - SEPSIS [None]
  - SUDDEN CARDIAC DEATH [None]
  - THROMBOTIC MICROANGIOPATHY [None]
